FAERS Safety Report 7477899-8 (Version None)
Quarter: 2011Q2

REPORT INFORMATION
  Report Type: 
  Country: None (occurrence: None)
  Receive Date: 20110513
  Receipt Date: 20090306
  Transmission Date: 20111010
  Serious: Yes (Hospitalization, Other)
  Sender: FDA-Public Use
  Company Number: US-BAYER-200914689NA

PATIENT
  Age: 55 Year
  Sex: Female
  Weight: 47.619 kg

DRUGS (19)
  1. METOPROLOL SUCCINATE [Concomitant]
     Dosage: 100MG /TWICE A DAY
     Route: 048
  2. COVERA-HS [Concomitant]
     Dosage: 240 MG, UNK
     Dates: start: 20011211
  3. CIMETIDINE [Concomitant]
     Dosage: 300 MG, UNK
     Route: 048
     Dates: start: 20010728
  4. ACYCLOVIR [Concomitant]
     Dosage: 400 MG, UNK
     Dates: start: 20010728
  5. COREG [Concomitant]
     Dosage: UNK
     Dates: start: 19980101
  6. TISSEEL KIT [Concomitant]
  7. PAPAVERINE HCL [Concomitant]
  8. ACETYLSALICYLIC ACID SRT [Concomitant]
     Dosage: 325 UNK, UNK
     Route: 048
  9. NAPROXEN SODIUM [Concomitant]
     Dosage: 550 MG, UNK
     Dates: start: 20010728
  10. TRASYLOL [Suspect]
     Indication: CORONARY ARTERY BYPASS
     Dosage: UNK
     Dates: start: 20030603
  11. SPIRONOLACTONE [Concomitant]
     Dosage: 25 MG, UNK
  12. LASIX [Concomitant]
     Dosage: 80 MG, QD
     Route: 048
     Dates: start: 20030105
  13. UNIVASC [Concomitant]
     Dosage: 15 MG, UNK
     Route: 048
     Dates: start: 20011205
  14. DOPAMINE HCL [Concomitant]
     Dosage: UNK
     Dates: start: 20030527
  15. NIPRIDE [Concomitant]
     Indication: HYPERTENSION
     Dosage: UNK
     Dates: start: 20030527
  16. ZAROXOLYN [Concomitant]
  17. CLONIDINE [Concomitant]
     Dosage: 02 MG, UNK
     Route: 048
  18. METFORMIN HCL [Concomitant]
     Dosage: 500 MG, UNK
  19. PLAVIX [Concomitant]
     Dosage: 75 MG, UNK
     Route: 048
     Dates: start: 20020305

REACTIONS (13)
  - MULTI-ORGAN FAILURE [None]
  - RENAL INJURY [None]
  - RENAL FAILURE [None]
  - MYOCARDIAL INFARCTION [None]
  - UNEVALUABLE EVENT [None]
  - FEAR [None]
  - RENAL IMPAIRMENT [None]
  - EMOTIONAL DISTRESS [None]
  - STRESS [None]
  - INJURY [None]
  - PAIN [None]
  - ANXIETY [None]
  - ANHEDONIA [None]
